FAERS Safety Report 6437088-2 (Version None)
Quarter: 2009Q4

REPORT INFORMATION
  Report Type: 
  Country: None (occurrence: None)
  Receive Date: 20091112
  Receipt Date: 20091028
  Transmission Date: 20100525
  Serious: Yes (Other)
  Sender: FDA-Public Use
  Company Number: PHHY2009GB45668

PATIENT
  Age: 69 Year
  Sex: Female

DRUGS (1)
  1. CLIMESSE [Suspect]
     Indication: HORMONE REPLACEMENT THERAPY

REACTIONS (6)
  - ARTHRITIS [None]
  - DIZZINESS [None]
  - DRUG INEFFECTIVE [None]
  - FEELING HOT [None]
  - HYSTERECTOMY [None]
  - OVARIAN MASS [None]
